FAERS Safety Report 8485970-7 (Version None)
Quarter: 2012Q3

REPORT INFORMATION
  Report Type: 
  Country: None (occurrence: None)
  Receive Date: 20120703
  Receipt Date: 20120628
  Transmission Date: 20120928
  Serious: Yes (Hospitalization, Other)
  Sender: FDA-Public Use
  Company Number: GB-ROXANE LABORATORIES, INC.-2012-RO-01499RO

PATIENT
  Sex: Female

DRUGS (7)
  1. QUETIAPINE FUMARATE [Suspect]
     Dosage: 750 MG
  2. NEO-MERCAZOLE TAB [Suspect]
     Indication: BIPOLAR DISORDER
     Dosage: 20 MG
  3. DEPAKOTE [Suspect]
     Dosage: 1500 MG
  4. LITHIUM CARBONATE [Suspect]
     Indication: BIPOLAR DISORDER
  5. OLANZAPINE [Suspect]
     Indication: BIPOLAR DISORDER
  6. QUETIAPINE FUMARATE [Suspect]
     Indication: BIPOLAR DISORDER
     Dosage: 300 MG
  7. DEPAKOTE [Suspect]
     Indication: BIPOLAR DISORDER
     Dosage: 1000 MG

REACTIONS (6)
  - SEDATION [None]
  - MANIA [None]
  - DYSPHAGIA [None]
  - THYROID DISORDER [None]
  - MENTAL IMPAIRMENT [None]
  - PSYCHOTIC DISORDER [None]
